FAERS Safety Report 15438688 (Version 1)
Quarter: 2018Q4

REPORT INFORMATION
  Report Type: Spontaneous
  Country: ES (occurrence: ES)
  Receive Date: 20180928
  Receipt Date: 20180928
  Transmission Date: 20190204
  Serious: Yes (Life-Threatening, Hospitalization)
  Sender: FDA-Public Use
  Company Number: ES-TEVA-2018-ES-959175

PATIENT
  Age: 23 Year
  Sex: Female
  Weight: 63.6 kg

DRUGS (1)
  1. CIPROFLOXACINO RATIO 500 MG COMPRIMIDOS RECUBIERTOS CON PELICULA EFG, [Suspect]
     Active Substance: CIPROFLOXACIN
     Indication: URINARY TRACT INFECTION
     Dosage: 500 MG EVERY 12 HOURS
     Route: 048
     Dates: start: 20180904, end: 20180907

REACTIONS (1)
  - Epilepsy [Recovered/Resolved]

NARRATIVE: CASE EVENT DATE: 20180907
